FAERS Safety Report 7434959-5 (Version None)
Quarter: 2011Q2

REPORT INFORMATION
  Report Type: 
  Country: None (occurrence: None)
  Receive Date: 20110425
  Receipt Date: 20110414
  Transmission Date: 20111010
  Serious: Yes (Other)
  Sender: FDA-Public Use
  Company Number: ES-ASTRAZENECA-2011SE21713

PATIENT
  Age: 96 Year
  Sex: Female

DRUGS (4)
  1. MANIDON PROLONG RELEASE [Suspect]
     Route: 065
     Dates: start: 20110201
  2. PRADAXA [Suspect]
     Indication: ATRIAL FIBRILLATION
     Route: 048
     Dates: start: 20110226, end: 20110228
  3. TENORMIN [Suspect]
     Route: 048
     Dates: start: 20110201
  4. FUROSEMIDE [Suspect]
     Indication: CARDIAC FAILURE
     Route: 065
     Dates: start: 20110201

REACTIONS (3)
  - RENAL FAILURE [None]
  - SHOCK [None]
  - CYTOLYTIC HEPATITIS [None]
